FAERS Safety Report 9845373 (Version 2)
Quarter: 2014Q1

REPORT INFORMATION
  Report Type: Spontaneous
  Country: US (occurrence: US)
  Receive Date: 20140127
  Receipt Date: 20140317
  Transmission Date: 20141002
  Serious: No
  Sender: FDA-Public Use
  Company Number: US-009507513-1401USA007111

PATIENT
  Sex: Female
  Weight: 71.2 kg

DRUGS (2)
  1. NEXPLANON [Suspect]
     Dosage: 1 ROD
     Route: 059
     Dates: start: 20140110, end: 20140110
  2. NEXPLANON [Suspect]
     Dosage: 1 ROD
     Route: 059
     Dates: start: 20140110

REACTIONS (4)
  - Implant site haemorrhage [Recovered/Resolved]
  - Medical device complication [Recovered/Resolved]
  - Wrong technique in drug usage process [Unknown]
  - Overdose [Unknown]
